FAERS Safety Report 22143171 (Version 1)
Quarter: 2023Q1

REPORT INFORMATION
  Report Type: Spontaneous
  Country: US (occurrence: US)
  Receive Date: 20230327
  Receipt Date: 20230327
  Transmission Date: 20230418
  Serious: Yes (Other)
  Sender: FDA-Public Use
  Company Number: US-PFIZER INC-2020488436

PATIENT
  Age: 39 Year
  Sex: Female

DRUGS (18)
  1. XELJANZ XR [Suspect]
     Active Substance: TOFACITINIB CITRATE
     Indication: Ankylosing spondylitis
     Dosage: 11 MG, 1X/DAY
     Dates: start: 2020
  2. XELJANZ XR [Suspect]
     Active Substance: TOFACITINIB CITRATE
     Indication: Psoriatic arthropathy
  3. XELJANZ XR [Suspect]
     Active Substance: TOFACITINIB CITRATE
     Indication: Psoriasis
  4. CYMBALTA [Concomitant]
     Active Substance: DULOXETINE HYDROCHLORIDE
     Dosage: UNK
  5. WEGOVY [Concomitant]
     Active Substance: SEMAGLUTIDE
     Dosage: UNK
  6. SLYND [Concomitant]
     Active Substance: DROSPIRENONE
     Dosage: UNK
  7. VITAMIN E [Concomitant]
     Active Substance: .ALPHA.-TOCOPHEROL
     Dosage: UNK
  8. THIAMINE [Concomitant]
     Active Substance: THIAMINE
     Dosage: UNK
  9. CLA [LINOLEIC ACID] [Concomitant]
     Dosage: UNK
  10. BIOTIN [Concomitant]
     Active Substance: BIOTIN
     Dosage: UNK
  11. VITAMIN B12 [Concomitant]
     Active Substance: CYANOCOBALAMIN
     Dosage: UNK
  12. FISH OIL [Concomitant]
     Active Substance: FISH OIL
     Dosage: UNK
  13. CALCIUM [Concomitant]
     Active Substance: CALCIUM
     Dosage: UNK
  14. COLACE [Concomitant]
     Active Substance: DOCUSATE SODIUM
     Dosage: UNK
  15. VITAMIN D3 [Concomitant]
     Active Substance: CHOLECALCIFEROL
     Dosage: UNK
  16. TOZINAMERAN [Concomitant]
     Active Substance: TOZINAMERAN
     Indication: COVID-19 immunisation
     Dosage: UNKNOWN DOSE NUMBER, SINGLE
  17. ASCORBIC ACID\IRON [Concomitant]
     Active Substance: ASCORBIC ACID\IRON
     Dosage: UNK
  18. FLUARIX NOS [Concomitant]
     Active Substance: INFLUENZA VIRUS VACCINE
     Dosage: UNK UNK, SINGLE

REACTIONS (2)
  - Metabolic surgery [Unknown]
  - Pain [Not Recovered/Not Resolved]

NARRATIVE: CASE EVENT DATE: 20220613
